FAERS Safety Report 11418653 (Version 2)
Quarter: 2015Q3

REPORT INFORMATION
  Report Type: Spontaneous
  Country: US (occurrence: US)
  Receive Date: 20150826
  Receipt Date: 20150925
  Transmission Date: 20151125
  Serious: No
  Sender: FDA-Public Use
  Company Number: US-BRISTOL-MYERS SQUIBB COMPANY-BMS-2015-056489

PATIENT
  Sex: Male

DRUGS (3)
  1. ERBITUX [Suspect]
     Active Substance: CETUXIMAB
     Dosage: 450 MG, UNK
     Route: 065
     Dates: start: 20150805
  2. ERBITUX [Suspect]
     Active Substance: CETUXIMAB
     Dosage: 450 MG, UNK
     Route: 065
     Dates: start: 20150812
  3. ERBITUX [Suspect]
     Active Substance: CETUXIMAB
     Indication: COLON CANCER METASTATIC
     Dosage: 750 MG, UNK.LOADING DOSE
     Route: 065
     Dates: start: 20150729

REACTIONS (1)
  - Rash [Unknown]
